FAERS Safety Report 4363458-2 (Version None)
Quarter: 2004Q2

REPORT INFORMATION
  Report Type: 
  Country: None (occurrence: None)
  Receive Date: 20040524
  Receipt Date: 20040512
  Transmission Date: 20050107
  Serious: Yes (Death, Hospitalization, Other)
  Sender: FDA-Public Use
  Company Number: JP-BRISTOL-MYERS SQUIBB COMPANY-12591129

PATIENT
  Age: 52 Year
  Sex: Male
  Weight: 49 kg

DRUGS (4)
  1. EFAVIRENZ CAPS [Suspect]
     Indication: HIV INFECTION
     Route: 048
     Dates: start: 20011101, end: 20021001
  2. DEXAMETHASONE [Suspect]
     Dates: start: 20020301, end: 20021201
  3. LAMIVUDINE [Concomitant]
     Dates: start: 20011101, end: 20021001
  4. ZIDOVUDINE [Concomitant]
     Dates: start: 20011101, end: 20021001

REACTIONS (7)
  - C-REACTIVE PROTEIN INCREASED [None]
  - GAMMA-GLUTAMYLTRANSFERASE INCREASED [None]
  - HYPERLIPIDAEMIA [None]
  - LUNG ADENOCARCINOMA [None]
  - METASTASES TO CENTRAL NERVOUS SYSTEM [None]
  - VOMITING [None]
  - WHITE BLOOD CELL COUNT DECREASED [None]
